FAERS Safety Report 7152441-X (Version None)
Quarter: 2010Q4

REPORT INFORMATION
  Report Type: 
  Country: None (occurrence: None)
  Receive Date: 20101208
  Receipt Date: 20101208
  Transmission Date: 20110411
  Serious: Yes (Life-Threatening, Hospitalization, Other)
  Sender: FDA-Public Use
  Company Number: None

PATIENT
  Age: 89 Year
  Sex: Female
  Weight: 49.8957 kg

DRUGS (2)
  1. SEROQUEL [Suspect]
     Indication: DEMENTIA
     Dosage: 12.5 MG 1-2 TIMES DAILY PO
     Route: 048
     Dates: start: 20100601
  2. TRAZADONE 50 MG GENERIC [Suspect]
     Indication: INSOMNIA
     Dosage: 50 MG AT BEDTIME PO
     Route: 048
     Dates: start: 20100611, end: 20101001

REACTIONS (3)
  - BUNDLE BRANCH BLOCK LEFT [None]
  - MYOCARDIAL INFARCTION [None]
  - OEDEMA PERIPHERAL [None]
